FAERS Safety Report 8834486 (Version 1)
Quarter: 2012Q4

REPORT INFORMATION
  Report Type: 
  Country: US (occurrence: US)
  Receive Date: 20121010
  Receipt Date: 20121010
  Transmission Date: 20130627
  Serious: Yes (Other)
  Sender: FDA-Public Use
  Company Number: PHEH2012US019692

PATIENT
  Age: 70 Year
  Sex: Female

DRUGS (8)
  1. TASIGNA [Suspect]
     Indication: NEOPLASM MALIGNANT
     Dosage: 400 mg, BID
     Route: 048
     Dates: start: 20110803
  2. CRESTOR [Concomitant]
  3. NORVASC [Concomitant]
  4. HYDROCORTISONE [Concomitant]
  5. VICODIN ES [Concomitant]
  6. PROAIR HFA [Concomitant]
  7. AZELASTINE HYDROCHLORIDE [Concomitant]
  8. SINGULAIR [Concomitant]

REACTIONS (3)
  - Dermatitis exfoliative [Recovering/Resolving]
  - Trichorrhexis [Unknown]
  - Alopecia [Recovering/Resolving]
